FAERS Safety Report 5167926-5 (Version None)
Quarter: 2006Q4

REPORT INFORMATION
  Report Type: 
  Country: None (occurrence: None)
  Receive Date: 20061208
  Receipt Date: 20051012
  Transmission Date: 20070319
  Serious: Yes (Other)
  Sender: FDA-Public Use
  Company Number: US-GLAXOSMITHKLINE-A0578038A

PATIENT
  Age: 68 Year
  Sex: Female
  Weight: 79.5 kg

DRUGS (4)
  1. AVANDAMET [Suspect]
     Dosage: 1TAB PER DAY
     Route: 048
     Dates: start: 20040820
  2. LANTUS [Suspect]
     Route: 058
  3. HYDROCHLOROTHIAZIDE [Concomitant]
  4. MONOPRIL [Concomitant]

REACTIONS (1)
  - HYPOGLYCAEMIA [None]
